FAERS Safety Report 14664968 (Version 1)
Quarter: 2018Q1

REPORT INFORMATION
  Report Type: Spontaneous
  Country: US (occurrence: US)
  Receive Date: 20180320
  Receipt Date: 20180320
  Transmission Date: 20180509
  Serious: Yes (Other)
  Sender: FDA-Public Use
  Company Number: None

PATIENT
  Age: 79 Year
  Sex: Male
  Weight: 86.17 kg

DRUGS (11)
  1. MAGNESIUM-CALCIUM [Concomitant]
  2. CREON [Concomitant]
     Active Substance: PANCRELIPASE AMYLASE\PANCRELIPASE LIPASE\PANCRELIPASE PROTEASE
  3. THERAGRAN-M [Concomitant]
     Active Substance: VITAMINS
  4. METOCLOPRAMIDE. [Concomitant]
     Active Substance: METOCLOPRAMIDE
  5. PHOSLO [Concomitant]
     Active Substance: CALCIUM ACETATE
  6. CAPECITABINE. [Suspect]
     Active Substance: CAPECITABINE
     Indication: PANCREATIC CARCINOMA
     Route: 048
     Dates: start: 20180220, end: 20180316
  7. ZOLPIDEM [Concomitant]
     Active Substance: ZOLPIDEM\ZOLPIDEM TARTRATE
  8. OXYCODONE [Concomitant]
     Active Substance: OXYCODONE
  9. OMEPRAZOLE. [Concomitant]
     Active Substance: OMEPRAZOLE
  10. METOPROLOL. [Concomitant]
     Active Substance: METOPROLOL
  11. BENAZEPRIL-HYDROCHLOROTHIAZIDE [Concomitant]

REACTIONS (2)
  - Rash [None]
  - Pain in extremity [None]
